FAERS Safety Report 25987118 (Version 1)
Quarter: 2025Q4

REPORT INFORMATION
  Report Type: Report from Study
  Country: US (occurrence: US)
  Receive Date: 20251103
  Receipt Date: 20251103
  Transmission Date: 20260118
  Serious: Yes (Hospitalization, Other)
  Sender: UPSHER SMITH LABORATORIES
  Company Number: US-UPSHER-SMITH LABORATORIES, LLC-20250701036

PATIENT
  Age: 0 Year

DRUGS (2)
  1. VIGADRONE [Suspect]
     Active Substance: VIGABATRIN
     Indication: Infantile spasms
     Dosage: 500 MG, BID (10 ML)
     Dates: start: 20240914
  2. VIGADRONE [Suspect]
     Active Substance: VIGABATRIN
     Dosage: 500 MG, BID (10 ML)
     Dates: start: 20240914

REACTIONS (5)
  - Respiratory disorder [Recovered/Resolved]
  - COVID-19 [Unknown]
  - Infection [Unknown]
  - Seizure [Unknown]
  - Pneumonia [Unknown]

NARRATIVE: CASE EVENT DATE: 20250704
